FAERS Safety Report 4716337-2 (Version None)
Quarter: 2005Q3

REPORT INFORMATION
  Report Type: 
  Country: None (occurrence: None)
  Receive Date: 20050711
  Receipt Date: 20050319
  Transmission Date: 20060218
  Serious: Yes (Other)
  Sender: FDA-Public Use
  Company Number: ENTC2005-0084

PATIENT
  Age: 70 Year
  Sex: Male

DRUGS (3)
  1. STALEVO 100 [Suspect]
     Indication: PARKINSON'S DISEASE
     Dosage: BID, ORAL
     Route: 048
     Dates: start: 20050201, end: 20050301
  2. PERGOLIDE (UNKNOWN) [Concomitant]
  3. SELEGILINE (UNKNOWN) [Concomitant]

REACTIONS (2)
  - BLOOD PRESSURE INCREASED [None]
  - HEADACHE [None]
